FAERS Safety Report 9778791 (Version 1)
Quarter: 2013Q4

REPORT INFORMATION
  Report Type: Spontaneous
  Country: PT (occurrence: PT)
  Receive Date: 20131223
  Receipt Date: 20131223
  Transmission Date: 20140711
  Serious: Yes (Hospitalization)
  Sender: FDA-Public Use
  Company Number: PT-MYLANLABS-2013S1028282

PATIENT
  Age: 15 Year
  Sex: Female

DRUGS (4)
  1. OLANZAPINE [Suspect]
     Route: 065
  2. HALOPERIDOL [Suspect]
     Route: 065
  3. RISPERIDONE [Suspect]
     Route: 065
  4. PALIPERIDONE [Suspect]
     Route: 065

REACTIONS (3)
  - Neuroleptic malignant syndrome [Recovering/Resolving]
  - Renal failure acute [Recovering/Resolving]
  - Hepatocellular injury [Recovering/Resolving]
